FAERS Safety Report 5205493-8 (Version None)
Quarter: 2006Q4

REPORT INFORMATION
  Report Type: 
  Country: None (occurrence: None)
  Receive Date: 20061027
  Receipt Date: 20060315
  Transmission Date: 20070319
  Serious: Yes (Other)
  Sender: FDA-Public Use
  Company Number: HQWYE421821MAR06

PATIENT
  Age: 69 Year
  Sex: Female
  Weight: 73.09 kg

DRUGS (12)
  1. PREMARIN [Suspect]
     Indication: OESTROGEN REPLACEMENT THERAPY
     Dosage: 0.625 MG QOD THEN 1/2 TABLET DAILY, ORAL
     Route: 048
     Dates: start: 20030301
  2. MULTIVITAMINS (ASCORBIC ACID/ERGOCALCIFEROL/FOLIC ACID/NICOTINAMIDE/PA [Concomitant]
  3. PHILLIPS (LAXCAPS (DOCUSATE SODIUM/PHENOLPHTHALEIN) [Concomitant]
  4. TYLENOL PM (DIPHENHYDRAMINE/PARACETAMOL) [Concomitant]
  5. LUNESTA [Concomitant]
  6. GELATIN [Concomitant]
  7. OMEGA-3 (OMEGA-3 TRIGLYCERIDES) [Concomitant]
  8. MIACALCIN [Concomitant]
  9. BENICAR [Concomitant]
  10. GABAPENTIN [Concomitant]
  11. PROTONIX [Concomitant]
  12. MOBIC [Concomitant]

REACTIONS (1)
  - ORAL LICHEN PLANUS [None]
